FAERS Safety Report 10063993 (Version 3)
Quarter: 2014Q2

REPORT INFORMATION
  Report Type: Report from Study
  Country: BR (occurrence: BR)
  Receive Date: 20140408
  Receipt Date: 20140618
  Transmission Date: 20141212
  Serious: Yes (Hospitalization)
  Sender: FDA-Public Use
  Company Number: BR-ROCHE-1312044

PATIENT
  Age: 40 Year
  Sex: Female
  Weight: 41 kg

DRUGS (3)
  1. ACTEMRA [Suspect]
     Indication: RHEUMATOID ARTHRITIS
     Dosage: MOST RECENT INFUSION ADMINISTERED ON 01/MAR/2014
     Route: 042
     Dates: start: 20130926
  2. PREDNISONE [Concomitant]
     Route: 065
  3. PANTOPRAZOLE [Concomitant]

REACTIONS (11)
  - Pyrexia [Not Recovered/Not Resolved]
  - Vomiting [Not Recovered/Not Resolved]
  - Dermatitis allergic [Not Recovered/Not Resolved]
  - Diarrhoea [Not Recovered/Not Resolved]
  - Abdominal distension [Not Recovered/Not Resolved]
  - Blood pressure fluctuation [Not Recovered/Not Resolved]
  - Gastric disorder [Unknown]
  - Puncture site infection [Recovered/Resolved]
  - Wound [Recovered/Resolved]
  - Weight decreased [Recovered/Resolved]
  - Hypersensitivity [Unknown]
